FAERS Safety Report 5842812-3 (Version None)
Quarter: 2008Q3

REPORT INFORMATION
  Report Type: 
  Country: None (occurrence: None)
  Receive Date: 20080811
  Receipt Date: 20060821
  Transmission Date: 20090109
  Serious: Yes (Hospitalization, Congenital Anomaly)
  Sender: FDA-Public Use
  Company Number: 2005156610

PATIENT
  Age: 4 Month
  Sex: Male
  Weight: 6.9 kg

DRUGS (7)
  1. CETIRIZINE HCL [Suspect]
     Indication: HYPERSENSITIVITY
     Dosage: 10 MG, PLACENTAL
     Route: 064
  2. LEVETIRACETAM [Suspect]
     Dosage: 2000 MG, PLACENTAL
     Route: 064
     Dates: start: 20040901, end: 20050516
  3. PHENYTOIN [Suspect]
     Dosage: 400 MG/20 MG, PLACENTAL
     Route: 064
  4. PAROXETINE HCL [Suspect]
     Indication: DEPRESSION
     Dosage: 37.5 MG, PLACENTAL
     Route: 064
  5. QUETIAPINE FUMARATE [Suspect]
     Indication: SLEEP DISORDER
     Dosage: 50 MG PRN, PLACENTAL
     Route: 064
  6. METHYLCELLULOSE (METHYLCELLULOSE) [Suspect]
     Indication: DRUG USE FOR UNKNOWN INDICATION
     Dosage: PLACENTAL
     Route: 064
  7. FOLIC ACID [Suspect]
     Indication: ANAEMIA NEONATAL
     Dosage: 4 MG, PLACENTAL
     Route: 064

REACTIONS (6)
  - ADRENAL INSUFFICIENCY [None]
  - ADRENOGENITAL SYNDROME [None]
  - ARNOLD-CHIARI MALFORMATION [None]
  - MATERNAL DRUGS AFFECTING FOETUS [None]
  - PREMATURE BABY [None]
  - SPEECH DISORDER DEVELOPMENTAL [None]
